FAERS Safety Report 5603034-4 (Version None)
Quarter: 2008Q1

REPORT INFORMATION
  Report Type: 
  Country: None (occurrence: None)
  Receive Date: 20080125
  Receipt Date: 20080118
  Transmission Date: 20080703
  Serious: Yes (Death, Hospitalization)
  Sender: FDA-Public Use
  Company Number: US-MERCK-0801USA03889

PATIENT
  Age: 54 Year
  Sex: Male

DRUGS (4)
  1. ZETIA [Suspect]
     Route: 048
     Dates: start: 20050401
  2. VYTORIN [Suspect]
     Route: 048
     Dates: start: 20070201
  3. VYTORIN [Suspect]
     Route: 048
  4. WELCHOL [Concomitant]
     Route: 065

REACTIONS (2)
  - CARDIOGENIC SHOCK [None]
  - MYOCARDIAL INFARCTION [None]
